FAERS Safety Report 7300117-8 (Version None)
Quarter: 2011Q1

REPORT INFORMATION
  Report Type: 
  Country: None (occurrence: None)
  Receive Date: 20110217
  Receipt Date: 20110209
  Transmission Date: 20110831
  Serious: Yes (Hospitalization)
  Sender: FDA-Public Use
  Company Number: US-GILEAD-2011-0035669

PATIENT
  Sex: Female

DRUGS (12)
  1. IMDUR [Concomitant]
  2. FOLIC ACID [Concomitant]
  3. LEXAPRO [Concomitant]
  4. POTASSIUM [Concomitant]
  5. DILTIAZEM [Concomitant]
  6. COUMADIN [Concomitant]
  7. FENTANYL-100 [Concomitant]
  8. LETAIRIS [Suspect]
     Indication: PULMONARY HYPERTENSION
     Route: 048
     Dates: start: 20100607
  9. THYROID TAB [Concomitant]
  10. COREG [Concomitant]
  11. LIPITOR [Concomitant]
  12. BUMEX [Concomitant]

REACTIONS (2)
  - ARTHRALGIA [None]
  - FALL [None]
